FAERS Safety Report 6497102-5 (Version None)
Quarter: 2009Q4

REPORT INFORMATION
  Report Type: 
  Country: None (occurrence: None)
  Receive Date: 20091215
  Receipt Date: 20090324
  Transmission Date: 20100525
  Serious: No
  Sender: FDA-Public Use
  Company Number: A0772527A

PATIENT
  Age: 84 Year
  Sex: Male
  Weight: 84.1 kg

DRUGS (1)
  1. AVODART [Suspect]
     Dosage: .5MG PER DAY
     Route: 048
     Dates: start: 20080101, end: 20090310

REACTIONS (3)
  - BREAST ENLARGEMENT [None]
  - BREAST MASS [None]
  - BREAST PAIN [None]
